FAERS Safety Report 7761194-3 (Version None)
Quarter: 2011Q3

REPORT INFORMATION
  Report Type: 
  Country: None (occurrence: None)
  Receive Date: 20110920
  Receipt Date: 20110907
  Transmission Date: 20111222
  Serious: Yes (Hospitalization, Other)
  Sender: FDA-Public Use
  Company Number: CH-ELI_LILLY_AND_COMPANY-CH201109003496

PATIENT
  Age: 73 Year
  Sex: Male

DRUGS (2)
  1. ZYPREXA [Suspect]
     Indication: SCHIZOPHRENIA
     Dosage: 5 MG, QD
     Dates: start: 20110617, end: 20110808
  2. PALIPERIDONE [Concomitant]
     Indication: SCHIZOPHRENIA
     Dosage: 100 MG, MONTHLY (1/M)
     Route: 030
     Dates: start: 20110511, end: 20110721

REACTIONS (2)
  - CATATONIA [None]
  - NEUROLEPTIC MALIGNANT SYNDROME [None]
